FAERS Safety Report 7730133-3 (Version None)
Quarter: 2011Q3

REPORT INFORMATION
  Report Type: 
  Country: None (occurrence: None)
  Receive Date: 20110906
  Receipt Date: 20110829
  Transmission Date: 20111222
  Serious: Yes (Other)
  Sender: FDA-Public Use
  Company Number: PHHY2011CO60296

PATIENT
  Age: 70 Year
  Sex: Female

DRUGS (2)
  1. ZOLEDRONOC ACID [Suspect]
     Indication: OSTEOPOROSIS
     Dosage: 5 MG/100 ML, ONCE A YEAR
     Route: 042
     Dates: start: 20110615
  2. CALCIUM CARBONATE [Concomitant]

REACTIONS (6)
  - DECREASED APPETITE [None]
  - COUGH [None]
  - ARTHRALGIA [None]
  - CHILLS [None]
  - HALLUCINATION [None]
  - MYALGIA [None]
